FAERS Safety Report 5189096-X (Version None)
Quarter: 2006Q4

REPORT INFORMATION
  Report Type: 
  Country: None (occurrence: None)
  Receive Date: 20061215
  Receipt Date: 20061204
  Transmission Date: 20070319
  Serious: Yes (Other)
  Sender: FDA-Public Use
  Company Number: 2006BI017699

PATIENT
  Age: 48 Year
  Sex: Female

DRUGS (1)
  1. AVONEX [Suspect]
     Indication: MULTIPLE SCLEROSIS
     Dosage: 30 UG; QW; IM
     Route: 030
     Dates: start: 20060601

REACTIONS (4)
  - CARDIOMEGALY [None]
  - CHEST PAIN [None]
  - INFLUENZA LIKE ILLNESS [None]
  - SECONDARY PROGRESSIVE MULTIPLE SCLEROSIS [None]
